FAERS Safety Report 9491961 (Version 1)
Quarter: 2013Q3

REPORT INFORMATION
  Report Type: Report from Study
  Country: US (occurrence: US)
  Receive Date: 20130830
  Receipt Date: 20130830
  Transmission Date: 20140515
  Serious: Yes (Hospitalization, Other)
  Sender: FDA-Public Use
  Company Number: US-ROCHE-1266810

PATIENT
  Age: 37 Year
  Sex: Female
  Weight: 70.82 kg

DRUGS (33)
  1. HERCEPTIN [Suspect]
     Indication: INFLAMMATORY CARCINOMA OF THE BREAST
     Route: 065
     Dates: start: 200803, end: 20111128
  2. HERCEPTIN [Suspect]
     Route: 065
     Dates: start: 20111213, end: 201202
  3. HERCEPTIN [Suspect]
     Route: 065
     Dates: start: 20120312, end: 20120611
  4. HERCEPTIN [Suspect]
     Route: 065
     Dates: start: 20121001, end: 20121129
  5. AROMASIN [Concomitant]
     Route: 065
     Dates: start: 20120312, end: 20120611
  6. GEMZAR [Concomitant]
  7. ABRAXANE [Concomitant]
     Route: 065
     Dates: start: 20110625, end: 20111128
  8. ABRAXANE [Concomitant]
     Route: 065
     Dates: start: 20121001, end: 20121129
  9. DURAGESIC [Concomitant]
     Route: 065
  10. TAXOTERE [Concomitant]
     Route: 065
     Dates: start: 200803, end: 200809
  11. TAMOXIFEN [Concomitant]
     Route: 065
     Dates: end: 20091120
  12. ARIMIDEX [Concomitant]
     Route: 065
     Dates: start: 20091120, end: 20110311
  13. LUPRON [Concomitant]
     Route: 065
     Dates: start: 20110311, end: 201106
  14. LUPRON [Concomitant]
     Route: 065
     Dates: start: 20110625, end: 20111128
  15. LUPRON [Concomitant]
     Route: 065
     Dates: start: 20111213, end: 201202
  16. LUPRON [Concomitant]
     Route: 065
     Dates: start: 20120312, end: 20120611
  17. XELODA [Concomitant]
     Route: 065
     Dates: start: 20120521, end: 20120907
  18. GEMCITABINE [Concomitant]
     Route: 065
     Dates: start: 20110625, end: 20111128
  19. GEMCITABINE [Concomitant]
     Route: 065
     Dates: start: 20121001, end: 20121129
  20. DOMPERIDONE [Concomitant]
     Route: 065
  21. SINGULAR [Concomitant]
     Dosage: AT BEDTIME
     Route: 065
  22. ALBUTEROL INHALER [Concomitant]
     Dosage: 2 PUFFS AS NEEDED
     Route: 065
  23. RANITIDINE [Concomitant]
     Route: 065
  24. DEXILANT [Concomitant]
     Route: 048
  25. SENNA [Concomitant]
     Route: 065
  26. FENTANYL PATCH [Concomitant]
     Route: 065
  27. MORPHINE SULFATE [Concomitant]
     Dosage: 5 EVERY HOUR AS NEEDED FORE BREAK THROUGH PAIN
     Route: 065
  28. ONDANSETRON [Concomitant]
     Dosage: 8 MG EVERY 8 HOURS AS NEEDED
     Route: 065
  29. HYDROMORPHONE [Concomitant]
     Dosage: 2MG EVERY 3 TO 4 HOURS AS NEEDED
     Route: 065
  30. COMPAZINE [Concomitant]
     Dosage: 10MG EVERY 6 HOURS AS NEEDED
     Route: 065
  31. LAPATINIB [Concomitant]
     Route: 065
     Dates: start: 20120521, end: 20120907
  32. EXEMESTANE [Concomitant]
     Route: 065
     Dates: start: 20110311, end: 201106
  33. RADIATION [Concomitant]
     Route: 065
     Dates: start: 20090324, end: 20090430

REACTIONS (7)
  - Abdominal pain [Recovering/Resolving]
  - Vomiting [Recovered/Resolved]
  - Toxicity to various agents [Unknown]
  - Fatigue [Unknown]
  - Weight decreased [Recovered/Resolved]
  - Disease progression [Unknown]
  - Postmenopause [Unknown]
